FAERS Safety Report 21579515 (Version 2)
Quarter: 2022Q4

REPORT INFORMATION
  Report Type: Spontaneous
  Country: FR (occurrence: FR)
  Receive Date: 20221110
  Receipt Date: 20221202
  Transmission Date: 20230113
  Serious: Yes (Hospitalization, Other)
  Sender: FDA-Public Use
  Company Number: None

PATIENT
  Age: 63 Year
  Sex: Female
  Weight: 42 kg

DRUGS (4)
  1. RITUXIMAB [Suspect]
     Active Substance: RITUXIMAB
     Indication: Chemotherapy
     Dosage: 675 MG
     Route: 042
     Dates: start: 20221006, end: 20221006
  2. CYTARABINE [Suspect]
     Active Substance: CYTARABINE
     Indication: Chemotherapy
     Dosage: 280 MG, CYCLIC
     Route: 042
     Dates: start: 20221007, end: 20221011
  3. ETOPOSIDE PHOSPHATE [Suspect]
     Active Substance: ETOPOSIDE PHOSPHATE
     Indication: Chemotherapy
     Dosage: 560 MG, CYCLIC
     Route: 042
     Dates: start: 20221007, end: 20221010
  4. MELPHALAN [Suspect]
     Active Substance: MELPHALAN
     Indication: Chemotherapy
     Dosage: 195 MG
     Route: 042
     Dates: start: 20221011, end: 20221011

REACTIONS (2)
  - Ventricular hypokinesia [Recovered/Resolved]
  - Ejection fraction decreased [Recovered/Resolved]

NARRATIVE: CASE EVENT DATE: 20221023
